FAERS Safety Report 8283042-8 (Version None)
Quarter: 2012Q2

REPORT INFORMATION
  Report Type: 
  Country: None (occurrence: None)
  Receive Date: 20120413
  Receipt Date: 20120329
  Transmission Date: 20120825
  Serious: Yes (Death, Hospitalization, Other)
  Sender: FDA-Public Use
  Company Number: US-ROCHE-1054502

PATIENT
  Age: 65 Year
  Sex: Male
  Weight: 117 kg

DRUGS (5)
  1. HERCEPTIN [Suspect]
     Dosage: 6 MG/KG IV
  2. CARBOPLATIN [Suspect]
     Indication: OESOPHAGEAL ADENOCARCINOMA
     Dosage: AUC=2, 19/DEC/2011: 1800 MG
     Route: 042
     Dates: start: 20111114, end: 20111219
  3. HERCEPTIN [Suspect]
     Indication: OESOPHAGEAL ADENOCARCINOMA
     Dosage: 4 MG/KG. 09/JAN/2012: 1851 MG
     Route: 042
     Dates: start: 20111114, end: 20120119
  4. PACLITAXEL [Suspect]
     Indication: OESOPHAGEAL ADENOCARCINOMA
     Dosage: 19/DEC/2011: 612 MG
     Route: 042
     Dates: start: 20111114, end: 20111219
  5. HERCEPTIN [Suspect]
     Dosage: 2 MG/KG

REACTIONS (5)
  - BRONCHOPLEURAL FISTULA [None]
  - SEPSIS [None]
  - RESPIRATORY FAILURE [None]
  - RENAL FAILURE ACUTE [None]
  - HEPATIC FAILURE [None]
